FAERS Safety Report 5150521-1 (Version None)
Quarter: 2006Q4

REPORT INFORMATION
  Report Type: 
  Country: None (occurrence: None)
  Receive Date: 20061114
  Receipt Date: 20061012
  Transmission Date: 20070319
  Serious: Yes (Other)
  Sender: FDA-Public Use
  Company Number: CA-SP-2006-02668

PATIENT
  Age: 46 Year
  Sex: Female

DRUGS (6)
  1. TUBERSOL [Suspect]
     Indication: TUBERCULIN TEST
     Route: 023
     Dates: start: 20061010
  2. VITAMINS [Concomitant]
  3. VITAMIN B6 [Concomitant]
  4. PULMICORT [Concomitant]
  5. VENTOLIN [Concomitant]
  6. GLUCOSAMINE [Concomitant]

REACTIONS (11)
  - ANAPHYLACTIC REACTION [None]
  - CHEST DISCOMFORT [None]
  - ERYTHEMA [None]
  - HYPOAESTHESIA [None]
  - HYPOAESTHESIA ORAL [None]
  - INJECTION SITE ERYTHEMA [None]
  - INJECTION SITE RASH [None]
  - INJECTION SITE VESICLES [None]
  - PALLOR [None]
  - PARAESTHESIA ORAL [None]
  - SPEECH DISORDER [None]
